FAERS Safety Report 22535874 (Version 1)
Quarter: 2023Q2

REPORT INFORMATION
  Report Type: Report from Study
  Country: IL (occurrence: IL)
  Receive Date: 20230608
  Receipt Date: 20230608
  Transmission Date: 20230722
  Serious: Yes (Other)
  Sender: FDA-Public Use
  Company Number: IL-002147023-NVSC2022IL059310

PATIENT
  Age: 22 Year
  Sex: Female
  Weight: 63 kg

DRUGS (3)
  1. DABRAFENIB [Suspect]
     Active Substance: DABRAFENIB
     Indication: Langerhans^ cell histiocytosis
     Dosage: 150 MG, BID (TOTAL 300 MG)
     Route: 048
     Dates: start: 20210801
  2. DABRAFENIB [Suspect]
     Active Substance: DABRAFENIB
     Dosage: 250 MG, QD (100 MG MORNING DOSE) (150 MG AT EVENING)
     Route: 065
     Dates: start: 20211201
  3. DABRAFENIB [Suspect]
     Active Substance: DABRAFENIB
     Dosage: 225 MG, QD (150 MG MORNING DOSE) AND 75 MG EVENING DOSE)
     Route: 065

REACTIONS (3)
  - Cataract [Unknown]
  - Dermal cyst [Recovered/Resolved]
  - Skin reaction [Unknown]

NARRATIVE: CASE EVENT DATE: 20211130
